FAERS Safety Report 14554349 (Version 1)
Quarter: 2018Q1

REPORT INFORMATION
  Report Type: Spontaneous
  Country: US (occurrence: US)
  Receive Date: 20180217
  Receipt Date: 20180217
  Transmission Date: 20180509
  Serious: Yes (Disabling, Other)
  Sender: FDA-Public Use
  Company Number: None

PATIENT

DRUGS (3)
  1. CELEBREXIB 200 MG CAP NORT [Suspect]
     Active Substance: CELECOXIB
     Indication: ARTHRITIS
     Dosage: ?          QUANTITY:1 CAPSULE(S);?
     Route: 048
     Dates: start: 20180124, end: 20180217
  2. CELEBREXIB 200 MG CAP NORT [Suspect]
     Active Substance: CELECOXIB
     Indication: FIBROMYALGIA
     Dosage: ?          QUANTITY:1 CAPSULE(S);?
     Route: 048
     Dates: start: 20180124, end: 20180217
  3. CELEBREXIB 200 MG CAP NORT [Suspect]
     Active Substance: CELECOXIB
     Indication: PAIN
     Dosage: ?          QUANTITY:1 CAPSULE(S);?
     Route: 048
     Dates: start: 20180124, end: 20180217

REACTIONS (7)
  - Musculoskeletal pain [None]
  - Pain in extremity [None]
  - Back pain [None]
  - Neck pain [None]
  - Condition aggravated [None]
  - Pain [None]
  - Arthralgia [None]

NARRATIVE: CASE EVENT DATE: 20180217
